FAERS Safety Report 5213020-4 (Version None)
Quarter: 2007Q1

REPORT INFORMATION
  Report Type: 
  Country: None (occurrence: None)
  Receive Date: 20070117
  Receipt Date: 20070117
  Transmission Date: 20070707
  Serious: Yes (Hospitalization)
  Sender: FDA-Public Use
  Company Number: None

PATIENT
  Age: 65 Year
  Sex: Male

DRUGS (4)
  1. LENALIDOMIDE 10MG PO DAILY [Suspect]
     Indication: MYELODYSPLASTIC SYNDROME
     Route: 048
  2. LEVALBUTEROL HCL [Concomitant]
  3. EPOGEN [Concomitant]
  4. FILGRASTIM [Concomitant]

REACTIONS (1)
  - RASH PRURITIC [None]
